FAERS Safety Report 23315374 (Version 1)
Quarter: 2023Q4

REPORT INFORMATION
  Report Type: Spontaneous
  Country: US (occurrence: None)
  Receive Date: 20231218
  Receipt Date: 20231218
  Transmission Date: 20240110
  Serious: No
  Sender: FDA-Public Use
  Company Number: None

PATIENT

DRUGS (1)
  1. METOPROLOL TARTRATE [Suspect]
     Active Substance: METOPROLOL TARTRATE

REACTIONS (4)
  - Arrhythmia [None]
  - Heart rate increased [None]
  - Product dispensing error [None]
  - Product packaging quantity issue [None]

NARRATIVE: CASE EVENT DATE: 20231031
